FAERS Safety Report 19959628 (Version 1)
Quarter: 2021Q4

REPORT INFORMATION
  Report Type: Spontaneous
  Country: US (occurrence: US)
  Receive Date: 20211012
  Receipt Date: 20211012
  Transmission Date: 20220303
  Serious: Yes (Other)
  Sender: FDA-Public Use
  Company Number: None

PATIENT
  Age: 17 Year
  Sex: Male
  Weight: 112.49 kg

DRUGS (2)
  1. ASENAPINE [Suspect]
     Active Substance: ASENAPINE
     Indication: Post-traumatic stress disorder
     Route: 048
     Dates: start: 20190201
  2. ASENAPINE [Suspect]
     Active Substance: ASENAPINE
     Indication: Post-traumatic stress disorder
     Route: 048
     Dates: start: 20190201

REACTIONS (2)
  - Drug ineffective [None]
  - Product substitution issue [None]

NARRATIVE: CASE EVENT DATE: 20211012
